FAERS Safety Report 10334656 (Version 3)
Quarter: 2019Q1

REPORT INFORMATION
  Report Type: Spontaneous
  Country: US (occurrence: US)
  Receive Date: 20140723
  Receipt Date: 20190325
  Transmission Date: 20190417
  Serious: No
  Sender: FDA-Public Use
  Company Number: US-PFIZER INC-2014202836

PATIENT
  Age: 81 Year
  Sex: Female
  Weight: 80.73 kg

DRUGS (5)
  1. ADVIL [Suspect]
     Active Substance: IBUPROFEN
     Dosage: 8 DF (SHE WAS TAKING EIGHT TABLETS IN 24 HOURS INSTEAD OF SIX)
  2. ELIQUIS [Suspect]
     Active Substance: APIXABAN
     Indication: ATRIAL FIBRILLATION
     Dosage: UNK
  3. ADVIL [Suspect]
     Active Substance: IBUPROFEN
     Dosage: 2 DF, 2X/DAY(200 MG TABLETS, 2 TABLETS IN THE MORNING AND 2 TABLETS IN THE EVENING )
     Route: 048
  4. ELIQUIS [Suspect]
     Active Substance: APIXABAN
     Indication: SEPSIS
  5. ADVIL [Suspect]
     Active Substance: IBUPROFEN
     Indication: ARTHRALGIA
     Dosage: ONE TABLET, EVERY 4 HRS
     Route: 048

REACTIONS (4)
  - Overdose [Unknown]
  - Anal haemorrhage [Not Recovered/Not Resolved]
  - Haemorrhoids [Unknown]
  - Drug ineffective [Unknown]

NARRATIVE: CASE EVENT DATE: 2018
